FAERS Safety Report 5830914-7 (Version None)
Quarter: 2008Q3

REPORT INFORMATION
  Report Type: 
  Country: None (occurrence: None)
  Receive Date: 20080801
  Receipt Date: 20080131
  Transmission Date: 20090109
  Serious: No
  Sender: FDA-Public Use
  Company Number: US-BRISTOL-MYERS SQUIBB COMPANY-14060800

PATIENT
  Age: 85 Year
  Sex: Male
  Weight: 73 kg

DRUGS (16)
  1. COUMADIN [Suspect]
     Indication: BLOOD GLUCOSE INCREASED
     Dosage: 2.5 MG DAILY FOR 5 DAYS, 5MG DAILY FOR 2 DAYS.
     Route: 048
  2. ACIDOPHILUS [Concomitant]
  3. COENZYME Q10 [Concomitant]
  4. PLAVIX [Concomitant]
  5. ASPIRIN [Concomitant]
  6. GLUCOPHAGE [Concomitant]
  7. GLUCOTROL [Concomitant]
  8. ESTER-C [Concomitant]
  9. SALMON OIL [Concomitant]
  10. LANOXIN [Concomitant]
  11. NORVASC [Concomitant]
  12. FUROSEMIDE [Concomitant]
  13. IMDUR [Concomitant]
  14. CHROMIUM [Concomitant]
  15. CENTRUM FORTE [Concomitant]
  16. MAGNESIUM SULFATE [Concomitant]

REACTIONS (1)
  - CONTUSION [None]
